FAERS Safety Report 6854121-4 (Version None)
Quarter: 2010Q3

REPORT INFORMATION
  Report Type: 
  Country: None (occurrence: None)
  Receive Date: 20100717
  Receipt Date: 20071230
  Transmission Date: 20110219
  Serious: No
  Sender: FDA-Public Use
  Company Number: US-PFIZER INC-2007108768

PATIENT
  Sex: Male
  Weight: 90.7 kg

DRUGS (6)
  1. CHANTIX [Suspect]
     Indication: SMOKING CESSATION THERAPY
     Route: 048
     Dates: start: 20071227
  2. LISINOPRIL [Concomitant]
     Indication: HYPERTENSION
     Route: 048
  3. MAGNESIUM [Concomitant]
     Route: 048
  4. COREG [Concomitant]
     Route: 048
  5. ACETYLSALICYLIC ACID [Concomitant]
     Route: 048
  6. FUROSEMIDE [Concomitant]
     Route: 048

REACTIONS (1)
  - SLEEP DISORDER [None]
